FAERS Safety Report 8473935-0 (Version None)
Quarter: 2012Q2

REPORT INFORMATION
  Report Type: 
  Country: None (occurrence: None)
  Receive Date: 20120628
  Receipt Date: 20120326
  Transmission Date: 20120825
  Serious: Yes (Other)
  Sender: FDA-Public Use
  Company Number: US-MYLANLABS-2012S1003264

PATIENT
  Age: 54 Year
  Sex: Male

DRUGS (10)
  1. CLOZAPINE [Suspect]
     Dosage: 100MG AT BEDTIME
     Route: 048
     Dates: end: 20120229
  2. COGENTIN [Concomitant]
  3. DUONEB [Concomitant]
  4. DEPAKOTE [Concomitant]
  5. LASIX [Concomitant]
  6. PRILOSEC [Concomitant]
  7. FENTANYL [Concomitant]
     Dosage: Q. 72 HOURS
  8. CARVEDILOL [Concomitant]
  9. POTASSIUM ACETATE [Concomitant]
  10. RISPERDAL [Concomitant]

REACTIONS (2)
  - GRANULOCYTOPENIA [None]
  - LEUKOPENIA [None]
